FAERS Safety Report 26074535 (Version 1)
Quarter: 2025Q4

REPORT INFORMATION
  Report Type: Spontaneous
  Country: US (occurrence: None)
  Receive Date: 20251120
  Receipt Date: 20251120
  Transmission Date: 20260119
  Serious: Yes (Hospitalization)
  Sender: FDA-CTU
  Company Number: None

PATIENT
  Age: 78 Year
  Sex: Female

DRUGS (1)
  1. AVONEX [Suspect]
     Active Substance: INTERFERON BETA-1A
     Dosage: OTHER STRENGTH : 30MCG/0.5ML (4/KIT;?OTHER QUANTITY : UNKNOWN, NOT FILLED WITH OPTUM;?OTHER FREQUENCY : UNKNOWN, NOT FILLED WITH OPTUM;?
     Route: 030

REACTIONS (1)
  - Adverse drug reaction [None]
